FAERS Safety Report 9181747 (Version 1)
Quarter: 2013Q1

REPORT INFORMATION
  Report Type: Spontaneous
  Country: US (occurrence: US)
  Receive Date: 20130322
  Receipt Date: 20130322
  Transmission Date: 20140127
  Serious: Yes (Other)
  Sender: FDA-Public Use
  Company Number: US-AMGEN-USASP2013018403

PATIENT
  Age: 68 Year
  Sex: Male

DRUGS (2)
  1. XGEVA [Suspect]
     Indication: PROSTATE CANCER STAGE IV
     Dosage: UNK
     Dates: start: 201209
  2. LUPRON [Concomitant]
     Dosage: UNK
     Dates: start: 201202

REACTIONS (1)
  - Prostatic specific antigen increased [Unknown]
